FAERS Safety Report 10192698 (Version 4)
Quarter: 2015Q2

REPORT INFORMATION
  Report Type: Report from Study
  Country: JP (occurrence: JP)
  Receive Date: 20140523
  Receipt Date: 20150619
  Transmission Date: 20150821
  Serious: Yes (Hospitalization, Other)
  Sender: FDA-Public Use
  Company Number: JP-TAKEDA-2014TUS004071

PATIENT
  Age: 53 Year
  Sex: Female
  Weight: 48 kg

DRUGS (50)
  1. SAMSCA [Concomitant]
     Active Substance: TOLVAPTAN
     Dosage: 7.5 MG, QD
     Route: 048
     Dates: start: 20130307, end: 20130417
  2. ANTEBATE:OINTMENT [Concomitant]
     Indication: HAND DERMATITIS
     Dosage: UNK
     Route: 061
     Dates: start: 20131105, end: 20131205
  3. AMLODIN OD [Concomitant]
     Active Substance: AMLODIPINE BESYLATE
     Indication: HYPERTENSION
     Dosage: 2.5 MG, QD
     Route: 048
     Dates: start: 20131120, end: 20150211
  4. KALIMATE [Concomitant]
     Active Substance: CALCIUM POLYSTYRENE SULFONATE
     Dosage: 25 G, BID
     Route: 048
     Dates: start: 20140821
  5. PROMAC                             /01312301/ [Concomitant]
     Active Substance: NITROFURANTOIN
     Indication: DYSGEUSIA
     Dosage: UNK
     Route: 048
     Dates: start: 201406, end: 20150323
  6. FEBUXOSTAT. [Suspect]
     Active Substance: FEBUXOSTAT
     Indication: HYPERURICAEMIA
     Dosage: 10 MG, QD
     Route: 048
     Dates: start: 20130213, end: 20131107
  7. LASIX [Suspect]
     Active Substance: FUROSEMIDE
     Dosage: 40 MG, QD
     Route: 048
     Dates: start: 20130315, end: 20131128
  8. ALDACTONE [Suspect]
     Active Substance: SPIRONOLACTONE
     Dosage: 25 MG, QD
     Route: 048
     Dates: start: 20131108, end: 20140429
  9. HIRUDOID                           /00723702/ [Concomitant]
     Active Substance: GLYCOSAMINOGLYCANS
     Dosage: AS NEEDED
     Route: 061
     Dates: start: 20130220, end: 20130226
  10. SAMSCA [Concomitant]
     Active Substance: TOLVAPTAN
     Indication: CARDIAC FAILURE
     Dosage: 15 MG, QD
     Route: 048
     Dates: start: 20130121, end: 20130306
  11. FERROMIA                           /00023520/ [Concomitant]
     Indication: ANAEMIA
     Dosage: 50 MG, BID
     Route: 048
     Dates: start: 20130507, end: 20140109
  12. DIART [Concomitant]
     Active Substance: AZOSEMIDE
     Indication: CARDIAC FAILURE
     Dosage: 30 MG, QD
     Route: 048
     Dates: start: 20130822, end: 20130911
  13. DIART [Concomitant]
     Active Substance: AZOSEMIDE
     Dosage: 15 MG, QD
     Route: 048
     Dates: start: 20130912
  14. HANP [Concomitant]
     Active Substance: CARPERITIDE
     Indication: CARDIAC FAILURE
     Dosage: 3000 ?G, QD
     Route: 041
     Dates: start: 20131101, end: 20131114
  15. DERMOVATE [Concomitant]
     Active Substance: CLOBETASOL
     Indication: HAND DERMATITIS
     Dosage: UNK
     Route: 061
     Dates: start: 20131112, end: 20140109
  16. KALIMATE [Concomitant]
     Active Substance: CALCIUM POLYSTYRENE SULFONATE
     Indication: HYPERKALAEMIA
     Dosage: 25 G, BID
     Route: 048
     Dates: start: 20140424, end: 20140618
  17. OLOPATADINE HYDROCHLORIDE. [Concomitant]
     Active Substance: OLOPATADINE HYDROCHLORIDE
     Indication: ECZEMA
     Dosage: 5 MG, BID
     Route: 048
     Dates: start: 20140430, end: 20140522
  18. LASIX [Suspect]
     Active Substance: FUROSEMIDE
     Dosage: 20 MG, QD
     Route: 048
     Dates: start: 20131129, end: 20140108
  19. URSO [Concomitant]
     Active Substance: URSODIOL
     Indication: HEPATIC CONGESTION
     Dosage: 200 MG, TID
     Route: 048
     Dates: start: 20130121
  20. HIRUDOID                           /00723702/ [Concomitant]
     Active Substance: GLYCOSAMINOGLYCANS
     Indication: HAND DERMATITIS
     Dosage: UNK
     Dates: start: 20131105, end: 20131205
  21. CONCENTRATED RED CELLS [Concomitant]
     Active Substance: HUMAN RED BLOOD CELL
     Indication: ANAEMIA
     Dosage: 4 IU, QD
     Route: 041
     Dates: start: 20130318, end: 20130318
  22. FERROMIA [Concomitant]
     Active Substance: FERROUS CITRATE
     Indication: ANAEMIA
     Dosage: 50 MG, QD
     Route: 048
     Dates: start: 20140717
  23. KALIMATE [Concomitant]
     Active Substance: CALCIUM POLYSTYRENE SULFONATE
     Dosage: 25 G, QD
     Route: 048
     Dates: start: 20140619, end: 20140820
  24. FLOMOX [Concomitant]
     Active Substance: CEFCAPENE PIVOXIL HYDROCHLORIDE HYDRATE
     Indication: DENTAL CARIES
     Dosage: UNK
     Route: 048
     Dates: start: 20140925, end: 20140927
  25. TRANSAMIN [Concomitant]
     Active Substance: TRANEXAMIC ACID
     Indication: DENTAL CARIES
     Dosage: UNK
     Route: 048
     Dates: start: 20140925, end: 20140927
  26. HEMOSTATICS [Concomitant]
     Indication: THALAMUS HAEMORRHAGE
     Dosage: UNK
     Route: 048
     Dates: start: 20140430, end: 20140522
  27. MECOBALAMIN [Concomitant]
     Active Substance: METHYLCOBALAMIN
     Indication: THALAMUS HAEMORRHAGE
     Dosage: 500 ?G, TID
     Route: 048
     Dates: start: 20140430, end: 20140522
  28. FEBUXOSTAT. [Suspect]
     Active Substance: FEBUXOSTAT
     Dosage: 20 MG, QD
     Route: 048
     Dates: start: 20131108
  29. OLMETEC [Suspect]
     Active Substance: OLMESARTAN MEDOXOMIL
     Indication: HYPERTENSION
     Dosage: 10 MG, QD
     Route: 048
     Dates: start: 20130303, end: 20130322
  30. LIVACT                             /00847901/ [Concomitant]
     Active Substance: ISOLEUCINE\LEUCINE\VALINE
     Indication: HEPATIC CONGESTION
     Dosage: 4.15 G, TID
     Route: 048
     Dates: start: 20130121, end: 20140429
  31. PROMAC                             /01312301/ [Concomitant]
     Active Substance: NITROFURANTOIN
     Indication: PROPHYLAXIS AGAINST GASTROINTESTINAL ULCER
     Dosage: 1 DF, BID
     Route: 048
     Dates: start: 20130223
  32. TOKISHAKUYAKUSAN [Concomitant]
     Indication: DYSGEUSIA
     Dosage: UNK
     Route: 048
     Dates: start: 201406, end: 20150323
  33. OLMETEC [Suspect]
     Active Substance: OLMESARTAN MEDOXOMIL
     Dosage: 20 MG, QD
     Route: 048
     Dates: start: 20130323
  34. ALDACTONE [Suspect]
     Active Substance: SPIRONOLACTONE
     Indication: CARDIAC FAILURE
     Dosage: 25 MG, QD
     Route: 048
     Dates: start: 20130307, end: 20130502
  35. POLARAMINE [Concomitant]
     Active Substance: DEXCHLORPHENIRAMINE MALEATE
     Indication: ECZEMA ASTEATOTIC
     Dosage: 2 MG, QD
     Route: 048
     Dates: start: 20131119, end: 20140429
  36. PURSENNID [Concomitant]
     Active Substance: SENNOSIDES A AND B
     Indication: CONSTIPATION
     Dosage: 24 MG, QD
     Route: 048
     Dates: start: 20140424
  37. DEXAN VG [Concomitant]
     Indication: ECZEMA
     Dosage: AS NEEDED
     Route: 048
     Dates: start: 20140430, end: 20140522
  38. LASIX [Suspect]
     Active Substance: FUROSEMIDE
     Indication: CARDIAC FAILURE
     Dosage: 60 MG, QD
     Route: 048
     Dates: start: 20130121, end: 20130314
  39. ALLEGRA [Concomitant]
     Active Substance: FEXOFENADINE HYDROCHLORIDE
     Indication: ECZEMA ASTEATOTIC
     Dosage: 60 MG, BID
     Route: 048
     Dates: start: 20130213, end: 20130219
  40. ARGAMATE [Concomitant]
     Active Substance: POLYSTYRENE
     Indication: HYPERKALAEMIA
     Dosage: 25 G, BID
     Route: 048
     Dates: start: 20130418, end: 20130506
  41. AMLODIN OD [Concomitant]
     Active Substance: AMLODIPINE BESYLATE
     Dosage: 5 MG, QD
     Route: 048
     Dates: start: 20150212
  42. ALDACTONE [Suspect]
     Active Substance: SPIRONOLACTONE
     Dosage: 12.5 MG, QD
     Route: 048
     Dates: start: 20130822, end: 20130911
  43. ALLELOCK [Concomitant]
     Active Substance: OLOPATADINE HYDROCHLORIDE
     Indication: ECZEMA ASTEATOTIC
     Dosage: 5 MG, BID
     Route: 048
     Dates: start: 20130220, end: 20130328
  44. LOCOID [Concomitant]
     Active Substance: HYDROCORTISONE BUTYRATE
     Indication: ECZEMA ASTEATOTIC
     Dosage: AS NEEDED
     Route: 061
     Dates: start: 20130220, end: 20130226
  45. GASTER [Concomitant]
     Active Substance: FAMOTIDINE
     Indication: PROPHYLAXIS AGAINST GASTROINTESTINAL ULCER
     Dosage: 20 MG, QD
     Route: 048
     Dates: start: 20130222
  46. ARTIST [Concomitant]
     Active Substance: CARVEDILOL
     Indication: CARDIAC FAILURE
     Dosage: 2.5 MG, QD
     Route: 048
     Dates: start: 20130307
  47. MYSER                              /01249201/ [Concomitant]
     Indication: ECZEMA ASTEATOTIC
     Dosage: AS NEEDED
     Route: 061
     Dates: start: 20130220, end: 20131104
  48. FOLIAMIN [Concomitant]
     Active Substance: FOLIC ACID
     Indication: ANAEMIA
     Dosage: 5 MG, TID
     Route: 048
     Dates: start: 20130121
  49. CALONAL [Concomitant]
     Active Substance: ACETAMINOPHEN
     Indication: DENTAL CARIES
     Dosage: UNK
     Route: 048
     Dates: start: 20140925, end: 20140927
  50. CALONAL [Concomitant]
     Active Substance: ACETAMINOPHEN
     Dosage: UNK
     Route: 048
     Dates: start: 20141127, end: 20141202

REACTIONS (21)
  - Aneurysm [Recovered/Resolved]
  - Cardiac failure [Recovering/Resolving]
  - Hepatic function abnormal [Recovering/Resolving]
  - Anaemia [Recovered/Resolved]
  - Dehydration [Recovered/Resolved]
  - Dysgeusia [Not Recovered/Not Resolved]
  - Hyperkalaemia [Recovered/Resolved]
  - Dehydration [Recovered/Resolved]
  - Thalamus haemorrhage [Recovered/Resolved with Sequelae]
  - Anaemia [Recovering/Resolving]
  - Dental caries [Recovered/Resolved]
  - Hyperkalaemia [Recovered/Resolved]
  - Hyperkalaemia [Recovered/Resolved]
  - Hand dermatitis [Recovered/Resolved]
  - Renal impairment [Recovering/Resolving]
  - Anaemia [Recovering/Resolving]
  - Hypertension [Recovering/Resolving]
  - Renal impairment [Recovering/Resolving]
  - Hypertension [Not Recovered/Not Resolved]
  - Hypertension [Recovering/Resolving]
  - Pyrexia [Recovered/Resolved]

NARRATIVE: CASE EVENT DATE: 20130310
